FAERS Safety Report 18665450 (Version 4)
Quarter: 2021Q1

REPORT INFORMATION
  Report Type: Spontaneous
  Country: CA (occurrence: CA)
  Receive Date: 20201225
  Receipt Date: 20210318
  Transmission Date: 20210419
  Serious: Yes (Other)
  Sender: FDA-Public Use
  Company Number: CA-CELLTRION INC.-2018CA020598

PATIENT

DRUGS (15)
  1. INFLECTRA [Suspect]
     Active Substance: INFLIXIMAB-DYYB
     Dosage: 10MG/KG EVERY 8 WEEKS THEREAFTER
     Route: 042
     Dates: start: 20180604, end: 20180604
  2. ODEFSEY [Concomitant]
     Active Substance: EMTRICITABINE\RILPIVIRINE HYDROCHLORIDE\TENOFOVIR ALAFENAMIDE FUMARATE
     Indication: HIV INFECTION
     Dosage: 1 D (200?25?25)F, DAILY
     Route: 048
  3. INFLECTRA [Suspect]
     Active Substance: INFLIXIMAB-DYYB
     Indication: COLITIS ULCERATIVE
     Dosage: 10 MG/KG, UNK
     Route: 042
     Dates: start: 20180529, end: 20180529
  4. INFLECTRA [Suspect]
     Active Substance: INFLIXIMAB-DYYB
     Dosage: 10 MG/KG, EVERY 4 WEEKS
     Route: 042
     Dates: start: 20201210
  5. VITAMIN D [VITAMIN D NOS] [Concomitant]
     Active Substance: VITAMIN D NOS
     Dosage: UNK
  6. RALTEGRAVIR. [Concomitant]
     Active Substance: RALTEGRAVIR
     Indication: HIV INFECTION
     Dosage: UNK
     Route: 048
  7. INFLECTRA [Suspect]
     Active Substance: INFLIXIMAB-DYYB
     Dosage: 10 MG/KG, UNK
     Route: 042
     Dates: start: 20181030
  8. INFLECTRA [Suspect]
     Active Substance: INFLIXIMAB-DYYB
     Dosage: 10 MG/KG, EVERY 6 WEEKS
     Route: 042
     Dates: start: 20181221
  9. CALCIUM [Concomitant]
     Active Substance: CALCIUM
     Dosage: UNK
  10. INFLECTRA [Suspect]
     Active Substance: INFLIXIMAB-DYYB
     Dosage: 10 MG/KG, EVERY 4 WEEKS
     Route: 042
  11. ACETAMINOPHEN. [Concomitant]
     Active Substance: ACETAMINOPHEN
     Indication: PREMEDICATION
     Dosage: UNK (325?650MG)
  12. PREDNISONE. [Concomitant]
     Active Substance: PREDNISONE
     Dosage: UNK, FOR 56 DAYS
     Dates: start: 20180528
  13. DIPHENHYDRAMINE. [Concomitant]
     Active Substance: DIPHENHYDRAMINE
     Indication: PREMEDICATION
     Dosage: UNK 25 ? 50 MG
     Route: 048
  14. INFLECTRA [Suspect]
     Active Substance: INFLIXIMAB-DYYB
     Dosage: 10 MG/KG, SEQUENCE 0?1?2?6 WEEKS THEN EVERY 8 WEEKS
     Route: 042
     Dates: start: 20180620
  15. ZANTAC [Concomitant]
     Active Substance: RANITIDINE HYDROCHLORIDE
     Indication: ABDOMINAL DISCOMFORT
     Dosage: 150 MG
     Route: 048
     Dates: start: 20200709

REACTIONS (16)
  - Abdominal pain [Not Recovered/Not Resolved]
  - Musculoskeletal chest pain [Unknown]
  - Condition aggravated [Unknown]
  - Pyrexia [Unknown]
  - Blood pressure fluctuation [Unknown]
  - Cough [Unknown]
  - Rhinorrhoea [Unknown]
  - Bone pain [Not Recovered/Not Resolved]
  - Inappropriate schedule of product administration [Unknown]
  - Eye injury [Unknown]
  - Arthralgia [Unknown]
  - Off label use [Unknown]
  - Heart rate increased [Unknown]
  - Back pain [Unknown]
  - Fatigue [Unknown]
  - Myalgia [Not Recovered/Not Resolved]

NARRATIVE: CASE EVENT DATE: 20180601
